FAERS Safety Report 19251569 (Version 2)
Quarter: 2021Q2

REPORT INFORMATION
  Report Type: Report from Study
  Country: DO (occurrence: DO)
  Receive Date: 20210512
  Receipt Date: 20210524
  Transmission Date: 20210717
  Serious: Yes (Hospitalization, Other)
  Sender: FDA-Public Use
  Company Number: NVSC2021DO098699

PATIENT
  Age: 70 Year
  Sex: Female

DRUGS (2)
  1. REVOLADE [Suspect]
     Active Substance: ELTROMBOPAG OLAMINE
     Indication: PLATELET COUNT DECREASED
     Dosage: 50 MG, Q24H (EVERY 24 HOURS)
     Route: 048
     Dates: start: 20210410
  2. REVOLADE [Suspect]
     Active Substance: ELTROMBOPAG OLAMINE
     Indication: APLASTIC ANAEMIA
     Dosage: 75 MG, Q24H (EVERY 24 HOURS)
     Route: 048

REACTIONS (4)
  - Nerve injury [Recovered/Resolved]
  - Platelet count decreased [Recovering/Resolving]
  - Restlessness [Recovered/Resolved]
  - Diffuse large B-cell lymphoma stage IV [Unknown]

NARRATIVE: CASE EVENT DATE: 20210410
